FAERS Safety Report 9875272 (Version 1)
Quarter: 2014Q1

REPORT INFORMATION
  Report Type: Spontaneous
  Country: US (occurrence: None)
  Receive Date: 20140205
  Receipt Date: 20140205
  Transmission Date: 20141002
  Serious: Yes (Death)
  Sender: FDA-Public Use
  Company Number: None

PATIENT
  Sex: Female

DRUGS (1)
  1. XELODA 500 MG GENENTECH [Suspect]
     Indication: PANCREATIC CARCINOMA
     Route: 048
     Dates: start: 20131212, end: 20140204

REACTIONS (1)
  - Death [None]
